FAERS Safety Report 18504761 (Version 1)
Quarter: 2020Q4

REPORT INFORMATION
  Report Type: Spontaneous
  Country: AR (occurrence: AR)
  Receive Date: 20201115
  Receipt Date: 20201115
  Transmission Date: 20210114
  Serious: Yes (Other)
  Sender: FDA-Public Use
  Company Number: AR-TEVA-2020-AR-1848124

PATIENT
  Age: 61 Year
  Sex: Male
  Weight: 58 kg

DRUGS (5)
  1. EZETIMIBE 10 MG [Concomitant]
     Active Substance: EZETIMIBE
  2. METFORMIN [Concomitant]
     Active Substance: METFORMIN HYDROCHLORIDE
  3. MINSULIP,FENOFIBRATE CAPSULES,200 MG [Suspect]
     Active Substance: FENOFIBRATE
     Dosage: 200 MILLIGRAM DAILY;
     Dates: start: 202005
  4. CARVEDILOL 3.5 MG [Concomitant]
  5. IVABRADINE 7.5 MG [Concomitant]

REACTIONS (3)
  - Muscle spasms [Not Recovered/Not Resolved]
  - Myocardial infarction [Recovered/Resolved]
  - Hypoaesthesia [Not Recovered/Not Resolved]

NARRATIVE: CASE EVENT DATE: 202005
